FAERS Safety Report 5000938-0 (Version None)
Quarter: 2006Q2

REPORT INFORMATION
  Report Type: 
  Country: None (occurrence: None)
  Receive Date: 20060512
  Receipt Date: 20041115
  Transmission Date: 20061013
  Serious: Yes (Hospitalization, Disabling)
  Sender: FDA-Public Use
  Company Number: US-ROCHE-386327

PATIENT
  Age: 17 Year
  Sex: Female
  Weight: 74.8 kg

DRUGS (4)
  1. ACCUTANE [Suspect]
     Indication: ACNE
     Route: 048
     Dates: start: 19991103
  2. ACCUTANE [Suspect]
     Dosage: ALTERNATING DOSE.
     Route: 048
     Dates: start: 19991116
  3. ACCUTANE [Suspect]
     Route: 048
     Dates: end: 20000315
  4. ALBUTEROL SULFATE AUTOHALER [Concomitant]
     Indication: ASTHMA

REACTIONS (13)
  - ARTHRITIS [None]
  - BLINDNESS [None]
  - BONE DISORDER [None]
  - DRY SKIN [None]
  - ECZEMA [None]
  - INTERVERTEBRAL DISC DEGENERATION [None]
  - KIDNEY INFECTION [None]
  - MUSCULOSKELETAL DISORDER [None]
  - OSTEOCHONDROSIS [None]
  - PATELLOFEMORAL PAIN SYNDROME [None]
  - RENAL DISORDER [None]
  - ROAD TRAFFIC ACCIDENT [None]
  - SPINAL OSTEOARTHRITIS [None]
